FAERS Safety Report 23300344 (Version 1)
Quarter: 2023Q4

REPORT INFORMATION
  Report Type: Spontaneous
  Country: US (occurrence: US)
  Receive Date: 20231215
  Receipt Date: 20231215
  Transmission Date: 20240109
  Serious: No
  Sender: FDA-Public Use
  Company Number: US-SPECGX-T202301378

PATIENT
  Sex: Female

DRUGS (1)
  1. FENTANYL TRANSDERMAL SYSTEM [Suspect]
     Active Substance: FENTANYL
     Indication: Product used for unknown indication
     Dosage: 50 MCG/HR
     Route: 062
     Dates: start: 2023

REACTIONS (8)
  - Pain [Unknown]
  - Mental status changes [Unknown]
  - Aphasia [Unknown]
  - Blood pressure fluctuation [Unknown]
  - Illness [Unknown]
  - Hyperhidrosis [Unknown]
  - Expired product administered [Unknown]
  - Product dispensing error [Unknown]

NARRATIVE: CASE EVENT DATE: 20230101
